FAERS Safety Report 8875568 (Version 1)
Quarter: 2012Q4

REPORT INFORMATION
  Report Type: 
  Country: US (occurrence: US)
  Receive Date: 20121023
  Receipt Date: 20121023
  Transmission Date: 20130627
  Serious: Yes (Hospitalization)
  Sender: FDA-Public Use
  Company Number: US-JNJFOC-20121010352

PATIENT
  Sex: Female

DRUGS (1)
  1. STELARA [Suspect]
     Indication: PSORIASIS
     Route: 058
     Dates: start: 201111

REACTIONS (5)
  - Myocardial infarction [Unknown]
  - Sepsis [Unknown]
  - Feeling abnormal [Unknown]
  - Blood potassium increased [Unknown]
  - C-reactive protein increased [Unknown]
